FAERS Safety Report 11705328 (Version 2)
Quarter: 2015Q4

REPORT INFORMATION
  Report Type: Spontaneous
  Country: US (occurrence: US)
  Receive Date: 20151106
  Receipt Date: 20151216
  Transmission Date: 20160304
  Serious: Yes (Death, Hospitalization)
  Sender: FDA-Public Use
  Company Number: US-SA-2015SA176782

PATIENT
  Age: 65 Year
  Sex: Male
  Weight: 83 kg

DRUGS (4)
  1. PLAVIX [Suspect]
     Active Substance: CLOPIDOGREL BISULFATE
     Indication: STENT PLACEMENT
     Route: 048
     Dates: start: 2004, end: 2015
  2. VFEND [Interacting]
     Active Substance: VORICONAZOLE
     Indication: LUNG INFECTION
     Route: 065
     Dates: start: 2015, end: 201508
  3. OXYGEN. [Concomitant]
     Active Substance: OXYGEN
  4. ANORO ELLIPTA [Concomitant]
     Active Substance: UMECLIDINIUM BROMIDE\VILANTEROL TRIFENATATE
     Route: 048

REACTIONS (7)
  - Hospitalisation [Fatal]
  - Nausea [Unknown]
  - Hallucination [Recovered/Resolved]
  - Vision blurred [Unknown]
  - Drug interaction [Recovered/Resolved]
  - Diarrhoea [Unknown]
  - Peripheral swelling [Unknown]

NARRATIVE: CASE EVENT DATE: 2015
